FAERS Safety Report 10654598 (Version 2)
Quarter: 2015Q2

REPORT INFORMATION
  Report Type: Spontaneous
  Country: JP (occurrence: None)
  Receive Date: 20141212
  Receipt Date: 20150410
  Transmission Date: 20150821
  Serious: Yes (Hospitalization, Disabling)
  Sender: FDA-Public Use
  Company Number: SP08689

PATIENT
  Age: 96 Year
  Sex: Female

DRUGS (9)
  1. GASCON [Concomitant]
     Active Substance: DIMETHICONE
  2. DIOVAN [Concomitant]
     Active Substance: VALSARTAN
  3. MOVIPREP [Suspect]
     Active Substance: ASCORBIC ACID\POLYETHYLENE GLYCOL 3350\POTASSIUM CHLORIDE\SODIUM ASCORBATE\SODIUM CHLORIDE\SODIUM SULFATE
     Indication: BOWEL PREPARATION
     Route: 048
     Dates: start: 20141202, end: 20141202
  4. SPIRONOLACTONE. [Concomitant]
     Active Substance: SPIRONOLACTONE
  5. SENNOSIDE A+B [Concomitant]
     Active Substance: SENNOSIDES A AND B
  6. OMEPRAZOLE. [Concomitant]
     Active Substance: OMEPRAZOLE
  7. FESIN [Concomitant]
     Active Substance: IRON SUCROSE
  8. LAXOBERON [Concomitant]
     Active Substance: SODIUM PICOSULFATE
  9. DIGOXIN. [Concomitant]
     Active Substance: DIGOXIN

REACTIONS (2)
  - Rectal perforation [None]
  - Intestinal dilatation [None]

NARRATIVE: CASE EVENT DATE: 20141202
